FAERS Safety Report 7348094-8 (Version None)
Quarter: 2011Q1

REPORT INFORMATION
  Report Type: 
  Country: None (occurrence: None)
  Receive Date: 20110311
  Receipt Date: 20110304
  Transmission Date: 20110831
  Serious: Yes (Hospitalization)
  Sender: FDA-Public Use
  Company Number: GB-ASTRAZENECA-2011SE12170

PATIENT
  Age: 68 Year
  Sex: Male
  Weight: 79 kg

DRUGS (9)
  1. NAPROXEN [Suspect]
     Route: 048
     Dates: start: 20110207, end: 20110217
  2. QUININE SULFATE [Suspect]
     Indication: MUSCLE SPASMS
     Route: 048
     Dates: start: 20110106, end: 20110217
  3. SIMVASTATIN [Concomitant]
  4. ASPIRIN [Concomitant]
  5. BROMOCRIPTINE MESYLATE [Concomitant]
  6. IRBESARTAN [Concomitant]
  7. LEVOTHYROXINE SODIUM [Concomitant]
  8. OMEPRAZOLE [Suspect]
     Indication: PROPHYLAXIS
     Route: 048
     Dates: start: 20110207, end: 20110217
  9. AMLODIPINE [Concomitant]

REACTIONS (8)
  - VOMITING [None]
  - RASH ERYTHEMATOUS [None]
  - CONJUNCTIVITIS [None]
  - PURPURA [None]
  - CONFUSIONAL STATE [None]
  - MOUTH ULCERATION [None]
  - STEVENS-JOHNSON SYNDROME [None]
  - DIARRHOEA [None]
